FAERS Safety Report 23574370 (Version 1)
Quarter: 2024Q1

REPORT INFORMATION
  Report Type: Report from Study
  Country: BR (occurrence: BR)
  Receive Date: 20240228
  Receipt Date: 20240228
  Transmission Date: 20240410
  Serious: Yes (Other)
  Sender: FDA-Public Use
  Company Number: BR-CELLTRION INC.-2024BR004683

PATIENT

DRUGS (2)
  1. INFLIXIMAB [Suspect]
     Active Substance: INFLIXIMAB
     Indication: Ankylosing spondylitis
     Dosage: 4 AMPOULES EVERY 4 WEEKS
     Route: 042
     Dates: start: 20230307
  2. METFORMIN [Concomitant]
     Active Substance: METFORMIN HYDROCHLORIDE
     Indication: Glucose tolerance impaired
     Dosage: 1 PILL A DAY; ABOUT A YEAR
     Route: 048

REACTIONS (8)
  - Leiomyoma [Recovering/Resolving]
  - Ankylosing spondylitis [Recovering/Resolving]
  - Iron deficiency anaemia [Recovering/Resolving]
  - Disturbance in attention [Recovering/Resolving]
  - Pelvic pain [Recovering/Resolving]
  - Impaired work ability [Recovering/Resolving]
  - Sleep disorder [Recovering/Resolving]
  - Back pain [Recovering/Resolving]

NARRATIVE: CASE EVENT DATE: 20240105
